FAERS Safety Report 8990689 (Version 1)
Quarter: 2012Q4

REPORT INFORMATION
  Report Type: Spontaneous
  Country: US (occurrence: None)
  Receive Date: 20121226
  Receipt Date: 20121226
  Transmission Date: 20130627
  Serious: Yes (Disabling)
  Sender: FDA-Public Use
  Company Number: None

PATIENT
  Age: 27 Year
  Sex: Female
  Weight: 60.33 kg

DRUGS (1)
  1. CIPROFLOXACIN [Suspect]
     Indication: FOOD POISONING
     Dosage: 500 mg 2X daily po
     Route: 048
     Dates: start: 20121126, end: 20121129

REACTIONS (11)
  - Joint swelling [None]
  - Joint stiffness [None]
  - Muscle swelling [None]
  - Arthralgia [None]
  - Arthralgia [None]
  - Abasia [None]
  - Crying [None]
  - Dysstasia [None]
  - Poisoning [None]
  - Movement disorder [None]
  - Feeling abnormal [None]
